FAERS Safety Report 19495906 (Version 2)
Quarter: 2021Q3

REPORT INFORMATION
  Report Type: Report from Study
  Country: US (occurrence: US)
  Receive Date: 20210706
  Receipt Date: 20210903
  Transmission Date: 20211014
  Serious: Yes (Hospitalization, Disabling)
  Sender: FDA-Public Use
  Company Number: US-SA-2020SA269318

PATIENT
  Age: 54 Year
  Sex: Male

DRUGS (3)
  1. SARILUMAB [Suspect]
     Active Substance: SARILUMAB
     Indication: RHEUMATOID ARTHRITIS
  2. SARILUMAB [Suspect]
     Active Substance: SARILUMAB
     Indication: ARTHROPATHY
     Dosage: 200 MG, QOW
     Route: 058
     Dates: start: 20181218
  3. COVID?19 VACCINE [Concomitant]
     Dosage: UNK
     Dates: start: 20201230

REACTIONS (14)
  - Hip arthroplasty [Recovered/Resolved]
  - Arthralgia [Unknown]
  - Pruritus [Unknown]
  - Dry skin [Unknown]
  - Product use in unapproved indication [Unknown]
  - Skin exfoliation [Unknown]
  - Erythema [Unknown]
  - Off label use [Unknown]
  - Musculoskeletal stiffness [Not Recovered/Not Resolved]
  - Joint swelling [Unknown]
  - Hypertension [Unknown]
  - Walking aid user [Recovered/Resolved]
  - Laboratory test abnormal [Unknown]
  - Condition aggravated [Unknown]

NARRATIVE: CASE EVENT DATE: 201812
